FAERS Safety Report 13706311 (Version 3)
Quarter: 2017Q3

REPORT INFORMATION
  Report Type: Spontaneous
  Country: DE (occurrence: DE)
  Receive Date: 20170630
  Receipt Date: 20170904
  Transmission Date: 20171127
  Serious: Yes (Hospitalization)
  Sender: FDA-Public Use
  Company Number: DE-JNJFOC-20170626182

PATIENT
  Sex: Male

DRUGS (3)
  1. XEPLION [Suspect]
     Active Substance: PALIPERIDONE PALMITATE
     Indication: PRODUCT USED FOR UNKNOWN INDICATION
     Dosage: RECEIVED IN GLUTEAL MUSCLE
     Route: 030
  2. XEPLION [Suspect]
     Active Substance: PALIPERIDONE PALMITATE
     Indication: PRODUCT USED FOR UNKNOWN INDICATION
     Route: 030
  3. XEPLION [Suspect]
     Active Substance: PALIPERIDONE PALMITATE
     Indication: PRODUCT USED FOR UNKNOWN INDICATION
     Dosage: RECEIVED IN GLUTEAL MUSCLE
     Route: 030
     Dates: start: 2017

REACTIONS (5)
  - Drug level decreased [Recovered/Resolved]
  - Incorrect dose administered [Unknown]
  - Drug administered at inappropriate site [Unknown]
  - Psychotic disorder [Unknown]
  - Off label use [Unknown]

NARRATIVE: CASE EVENT DATE: 2017
